FAERS Safety Report 15706054 (Version 1)
Quarter: 2018Q4

REPORT INFORMATION
  Report Type: Spontaneous
  Country: US (occurrence: US)
  Receive Date: 20181210
  Receipt Date: 20181210
  Transmission Date: 20190205
  Serious: No
  Sender: FDA-Public Use
  Company Number: US-BAUSCH-BL-2018-033765

PATIENT
  Age: 59 Year
  Sex: Female
  Weight: 72.19 kg

DRUGS (2)
  1. LUMIFY [Suspect]
     Active Substance: BRIMONIDINE TARTRATE
     Dosage: ONE DROP IN EACH EYE ONCE OR TWICE DAILY
     Route: 047
     Dates: start: 20181130, end: 20181130
  2. LUMIFY [Suspect]
     Active Substance: BRIMONIDINE TARTRATE
     Indication: OCULAR HYPERAEMIA
     Dosage: ONE DROP IN EACH EYE ONCE OR TWICE DAILY
     Route: 047
     Dates: start: 201809, end: 2018

REACTIONS (7)
  - Oropharyngeal pain [Not Recovered/Not Resolved]
  - Sinusitis [Not Recovered/Not Resolved]
  - Nasal discomfort [Not Recovered/Not Resolved]
  - Eye irritation [Not Recovered/Not Resolved]
  - Product quality issue [Recovered/Resolved]
  - Pharyngeal paraesthesia [Not Recovered/Not Resolved]
  - Throat irritation [Not Recovered/Not Resolved]

NARRATIVE: CASE EVENT DATE: 20181130
